FAERS Safety Report 14247861 (Version 1)
Quarter: 2017Q4

REPORT INFORMATION
  Report Type: Spontaneous
  Country: US (occurrence: US)
  Receive Date: 20171204
  Receipt Date: 20171204
  Transmission Date: 20180321
  Serious: No
  Sender: FDA-Public Use
  Company Number: US-LEXICON PHARMACEUTICALS, INC-17-1606-01132

PATIENT
  Age: 68 Year
  Sex: Male

DRUGS (18)
  1. VITAMIN B [Concomitant]
     Active Substance: VITAMIN B
  2. ROPINIROLE. [Concomitant]
     Active Substance: ROPINIROLE
  3. VOLTAREN [Concomitant]
     Active Substance: DICLOFENAC SODIUM
  4. OMEPRAZOLE. [Concomitant]
     Active Substance: OMEPRAZOLE
  5. DICYCLOMINE [Concomitant]
     Active Substance: DICYCLOMINE HYDROCHLORIDE
  6. OPIUM. [Concomitant]
     Active Substance: OPIUM
  7. PAROXETINE. [Concomitant]
     Active Substance: PAROXETINE
  8. ASPIR-LOW [Concomitant]
     Active Substance: ASPIRIN
  9. SERTRALINE [Concomitant]
     Active Substance: SERTRALINE HYDROCHLORIDE
  10. AMLODIPINE [Concomitant]
     Active Substance: AMLODIPINE BESYLATE
  11. TELOTRISTAT ETHYL [Suspect]
     Active Substance: TELOTRISTAT ETHYL
     Indication: CARCINOID SYNDROME
     Route: 048
     Dates: start: 20171005
  12. ALLOPURINOL. [Concomitant]
     Active Substance: ALLOPURINOL
  13. INDOMETHACIN. [Concomitant]
     Active Substance: INDOMETHACIN
  14. KLOR-CON [Concomitant]
     Active Substance: POTASSIUM CHLORIDE
  15. PREDNISOLONE. [Concomitant]
     Active Substance: PREDNISOLONE
  16. NIACIN. [Concomitant]
     Active Substance: NIACIN
  17. SANDOSTATIN [Concomitant]
     Active Substance: OCTREOTIDE ACETATE
  18. MAGNESIUM [Concomitant]
     Active Substance: MAGNESIUM

REACTIONS (1)
  - Decreased appetite [Unknown]

NARRATIVE: CASE EVENT DATE: 201710
